FAERS Safety Report 17720778 (Version 2)
Quarter: 2020Q2

REPORT INFORMATION
  Report Type: Spontaneous
  Country: US (occurrence: US)
  Receive Date: 20200428
  Receipt Date: 20200601
  Transmission Date: 20200714
  Serious: No
  Sender: FDA-Public Use
  Company Number: US-ASTRAZENECA-2020SE55214

PATIENT
  Age: 15502 Day
  Sex: Female

DRUGS (1)
  1. PULMICORT FLEXHALER [Suspect]
     Active Substance: BUDESONIDE
     Dosage: 180 UG 1-2 PUFFS TWICE A DAY
     Route: 055
     Dates: start: 201911

REACTIONS (2)
  - Device issue [Unknown]
  - Asthma [Not Recovered/Not Resolved]
